FAERS Safety Report 6926394 (Version 3)
Quarter: 2020Q3

REPORT INFORMATION
  Report Type: Report from Study
  Country: US (occurrence: US)
  Receive Date: 20090304
  Receipt Date: 20090318
  Transmission Date: 20201105
  Serious: Yes (Other)
  Sender: FDA-Public Use
  Company Number: US-WYE-H08393709

PATIENT
  Age: 61 Year
  Sex: Male
  Weight: 93.07 kg

DRUGS (12)
  1. INTERFERON ALFA NOS [Suspect]
     Active Substance: INTERFERON ALFA-2A OR INTERFERON ALFA-2B
     Indication: RENAL CANCER
     Dosage: NOT PROVIDED
     Route: 058
     Dates: start: 20081209, end: 20090217
  2. VICODIN [Concomitant]
     Active Substance: ACETAMINOPHEN\HYDROCODONE BITARTRATE
     Indication: ABDOMINAL PAIN UPPER
     Dosage: NOT PROVIDED
     Route: 065
     Dates: start: 20081101
  3. SODIUM PHOSPHATE [Concomitant]
     Active Substance: SODIUM PHOSPHATE
     Indication: CONSTIPATION
     Dosage: NOT PROVIDED
     Route: 065
     Dates: start: 20081125
  4. BEVACIZUMAB. [Suspect]
     Active Substance: BEVACIZUMAB
     Indication: RENAL CANCER
     Route: 042
     Dates: start: 20081209, end: 20090217
  5. MAALOX ANTACID [Concomitant]
     Active Substance: ALUMINUM HYDROXIDE\DIMETHICONE\MAGNESIUM HYDROXIDE
     Indication: DYSPEPSIA
     Dosage: NOT PROVIDED
     Route: 065
     Dates: start: 20081115
  6. SIMVASTATIN. [Concomitant]
     Active Substance: SIMVASTATIN
     Indication: HYPERCHOLESTEROLAEMIA
     Dosage: NOT PROVIDED
     Route: 065
     Dates: start: 20080929
  7. GLIPIZIDE. [Concomitant]
     Active Substance: GLIPIZIDE
     Indication: DIABETES MELLITUS
     Dosage: NOT PROVIDED
     Route: 065
     Dates: start: 20080915
  8. LISINOPRIL. [Concomitant]
     Active Substance: LISINOPRIL
     Indication: HYPERTENSION
     Dosage: NOT PROVIDED
     Route: 065
     Dates: start: 20080901
  9. VICODIN [Concomitant]
     Active Substance: ACETAMINOPHEN\HYDROCODONE BITARTRATE
     Indication: ABDOMINAL PAIN LOWER
  10. FERROUS SULFATE. [Concomitant]
     Active Substance: FERROUS SULFATE
     Indication: ANAEMIA
     Dosage: NOT PROVIDED
     Route: 065
     Dates: start: 20081001
  11. LOVAZA [Concomitant]
     Active Substance: OMEGA-3-ACID ETHYL ESTERS
     Indication: SUPPLEMENTATION THERAPY
     Dosage: NOT PROVIDED
     Route: 065
     Dates: start: 2006
  12. VICODIN [Concomitant]
     Active Substance: ACETAMINOPHEN\HYDROCODONE BITARTRATE
     Indication: FLANK PAIN

REACTIONS (1)
  - Lacunar infarction [Not Recovered/Not Resolved]

NARRATIVE: CASE EVENT DATE: 20090220
